FAERS Safety Report 4927126-8 (Version None)
Quarter: 2006Q1

REPORT INFORMATION
  Report Type: 
  Country: None (occurrence: None)
  Receive Date: 20060222
  Receipt Date: 20060211
  Transmission Date: 20060701
  Serious: Yes (Hospitalization)
  Sender: FDA-Public Use
  Company Number: 2006PV008799

PATIENT
  Age: 68 Year
  Sex: Female
  Weight: 68.0396 kg

DRUGS (5)
  1. BYETTA [Suspect]
     Indication: DIABETES MELLITUS NON-INSULIN-DEPENDENT
     Dosage: 5 MCG BID SC ; 10 MCG BID SC
     Route: 058
     Dates: start: 20051201, end: 20060101
  2. BYETTA [Suspect]
     Indication: DIABETES MELLITUS NON-INSULIN-DEPENDENT
     Dosage: 5 MCG BID SC ; 10 MCG BID SC
     Route: 058
     Dates: start: 20060101, end: 20060207
  3. GLUCOPHAGE [Concomitant]
  4. LANTUS [Concomitant]
  5. LANTUS [Concomitant]

REACTIONS (8)
  - ANXIETY [None]
  - CHILLS [None]
  - COLD SWEAT [None]
  - COLITIS [None]
  - DIARRHOEA [None]
  - NAUSEA [None]
  - RECTAL HAEMORRHAGE [None]
  - VOMITING [None]
